FAERS Safety Report 9051028 (Version 1)
Quarter: 2013Q1

REPORT INFORMATION
  Report Type: Spontaneous
  Country: US (occurrence: US)
  Receive Date: 20130205
  Receipt Date: 20130205
  Transmission Date: 20140127
  Serious: No
  Sender: FDA-Public Use
  Company Number: US-ROXANE LABORATORIES, INC.-2013-RO-00126RO

PATIENT
  Sex: Male

DRUGS (1)
  1. METHADONE [Suspect]
     Indication: PAIN
     Dosage: 120 MG
     Route: 048

REACTIONS (2)
  - Withdrawal syndrome [Not Recovered/Not Resolved]
  - Product quality issue [Unknown]
